FAERS Safety Report 7530045-4 (Version None)
Quarter: 2011Q2

REPORT INFORMATION
  Report Type: 
  Country: None (occurrence: None)
  Receive Date: 20110607
  Receipt Date: 20110525
  Transmission Date: 20111010
  Serious: Yes (Other)
  Sender: FDA-Public Use
  Company Number: PHHY2011JP45959

PATIENT
  Sex: Female

DRUGS (1)
  1. NEORAL [Suspect]
     Indication: NEPHROTIC SYNDROME
     Dosage: 200 MG, QD
     Route: 048

REACTIONS (2)
  - IMMUNOSUPPRESSANT DRUG LEVEL INCREASED [None]
  - BLOOD CHOLESTEROL ABNORMAL [None]
